FAERS Safety Report 23150549 (Version 1)
Quarter: 2023Q4

REPORT INFORMATION
  Report Type: Spontaneous
  Country: US (occurrence: None)
  Receive Date: 20231105
  Receipt Date: 20231105
  Transmission Date: 20240110
  Serious: Yes (Disabling)
  Sender: FDA-Public Use
  Company Number: None

PATIENT
  Age: 40 Year
  Sex: Female
  Weight: 139.5 kg

DRUGS (1)
  1. TALTZ [Suspect]
     Active Substance: IXEKIZUMAB
     Indication: Psoriatic arthropathy
     Dosage: OTHER QUANTITY : 1 INJECTION(S);?OTHER FREQUENCY : MONTHLY;?
     Route: 058

REACTIONS (7)
  - Injection site mass [None]
  - Injection site erythema [None]
  - Pruritus [None]
  - Cellulitis [None]
  - Injection site pain [None]
  - Skin burning sensation [None]
  - Urticaria [None]

NARRATIVE: CASE EVENT DATE: 20231001
